FAERS Safety Report 9237849 (Version 2)
Quarter: 2013Q2

REPORT INFORMATION
  Report Type: Spontaneous
  Country: US (occurrence: US)
  Receive Date: 20130418
  Receipt Date: 20130523
  Transmission Date: 20140414
  Serious: No
  Sender: FDA-Public Use
  Company Number: US-BIOGENIDEC-2013BI034878

PATIENT
  Age: 28 Year
  Sex: Male

DRUGS (2)
  1. TYSABRI [Suspect]
     Indication: MULTIPLE SCLEROSIS
     Route: 042
     Dates: start: 20091007, end: 20101230
  2. TYSABRI [Suspect]
     Indication: MULTIPLE SCLEROSIS
     Route: 042
     Dates: start: 20110502, end: 20130328

REACTIONS (10)
  - Muscular weakness [Not Recovered/Not Resolved]
  - Fear [Not Recovered/Not Resolved]
  - Drug intolerance [Not Recovered/Not Resolved]
  - Angiopathy [Not Recovered/Not Resolved]
  - Cerebrovascular stenosis [Not Recovered/Not Resolved]
  - Memory impairment [Not Recovered/Not Resolved]
  - Anxiety [Recovered/Resolved]
  - Gait disturbance [Not Recovered/Not Resolved]
  - Drug specific antibody present [Unknown]
  - Fatigue [Recovered/Resolved]
